FAERS Safety Report 20937574 (Version 1)
Quarter: 2022Q2

REPORT INFORMATION
  Report Type: Other
  Country: US (occurrence: None)
  Receive Date: 20220609
  Receipt Date: 20220609
  Transmission Date: 20220721
  Serious: Yes (Death, Other)
  Sender: FDA-Public Use
  Company Number: US-ROCHE-2625216

PATIENT
  Sex: Male
  Weight: 99.3 kg

DRUGS (21)
  1. CELLCEPT [Suspect]
     Active Substance: MYCOPHENOLATE MOFETIL
     Indication: Interstitial lung disease
     Route: 048
  2. CELLCEPT [Suspect]
     Active Substance: MYCOPHENOLATE MOFETIL
     Indication: Chronic respiratory failure
  3. CELLCEPT [Suspect]
     Active Substance: MYCOPHENOLATE MOFETIL
     Indication: Hypoxia
  4. CELLCEPT [Suspect]
     Active Substance: MYCOPHENOLATE MOFETIL
     Indication: Drug therapy
  5. CELLCEPT [Suspect]
     Active Substance: MYCOPHENOLATE MOFETIL
     Indication: Interstitial lung disease
  6. CELLCEPT [Suspect]
     Active Substance: MYCOPHENOLATE MOFETIL
     Indication: Asthma
  7. CELLCEPT [Suspect]
     Active Substance: MYCOPHENOLATE MOFETIL
     Indication: Obesity
  8. DELTASONE [Concomitant]
     Active Substance: PREDNISONE
  9. OFEV [Concomitant]
     Active Substance: NINTEDANIB
  10. DAPSONE [Concomitant]
     Active Substance: DAPSONE
  11. PROAIR HFA [Concomitant]
     Active Substance: ALBUTEROL SULFATE
  12. SINGULAIR [Concomitant]
     Active Substance: MONTELUKAST SODIUM
  13. ELIQUIS [Concomitant]
     Active Substance: APIXABAN
  14. ASPIRIN [Concomitant]
     Active Substance: ASPIRIN
  15. VITAMIN D3 [Concomitant]
     Active Substance: CHOLECALCIFEROL
  16. LOMOTIL [Concomitant]
     Active Substance: ATROPINE SULFATE\DIPHENOXYLATE HYDROCHLORIDE
  17. SYNTHROID [Concomitant]
     Active Substance: LEVOTHYROXINE SODIUM
  18. CLARITIN [Concomitant]
     Active Substance: LORATADINE
  19. PRILOSEC [Concomitant]
     Active Substance: OMEPRAZOLE MAGNESIUM
  20. PRAVACHOL [Concomitant]
     Active Substance: PRAVASTATIN SODIUM
  21. SODIUM CHLORIDE [Concomitant]
     Active Substance: SODIUM CHLORIDE

REACTIONS (3)
  - Death [Fatal]
  - Squamous cell carcinoma of skin [Unknown]
  - Off label use [Unknown]
